FAERS Safety Report 15482069 (Version 1)
Quarter: 2018Q4

REPORT INFORMATION
  Report Type: Spontaneous
  Country: US (occurrence: US)
  Receive Date: 20181010
  Receipt Date: 20181010
  Transmission Date: 20190205
  Serious: Yes (Other)
  Sender: FDA-Public Use
  Company Number: US-BAXTER-2018BAX025394

PATIENT
  Age: 67 Year
  Sex: Male

DRUGS (7)
  1. EPINEPHRINE. [Suspect]
     Active Substance: EPINEPHRINE
     Dosage: WEANED TO 0.05 UG/KG/MIN
     Route: 042
  2. METHYLENE BLUE. [Concomitant]
     Active Substance: METHYLENE BLUE
     Indication: SHOCK
     Route: 040
  3. EPINEPHRINE. [Suspect]
     Active Substance: EPINEPHRINE
     Indication: VASOPLEGIA SYNDROME
     Route: 042
  4. VASOPRESSIN. [Suspect]
     Active Substance: VASOPRESSIN
     Indication: VASOPLEGIA SYNDROME
     Dosage: 0.04 UNITS/MIN
     Route: 042
  5. NOREPINEPHRINE BITARTRATE INJECTION, USP [Suspect]
     Active Substance: NOREPINEPHRINE BITARTRATE
     Indication: VASOPLEGIA SYNDROME
     Dosage: INCREASING AMOUNT OF NOREPINEPHRINE. IT CONTINUED TO RAPIDLY INCREASE, AND ONCE IT REACHED 0.3 UG/KG
     Route: 042
  6. HYDROCORTISONE. [Concomitant]
     Active Substance: HYDROCORTISONE
     Indication: SHOCK
     Route: 042
  7. NOREPINEPHRINE BITARTRATE INJECTION, USP [Suspect]
     Active Substance: NOREPINEPHRINE BITARTRATE
     Route: 042

REACTIONS (1)
  - Drug ineffective [Unknown]
